FAERS Safety Report 25666426 (Version 4)
Quarter: 2025Q3

REPORT INFORMATION
  Report Type: Report from Study
  Country: US (occurrence: US)
  Receive Date: 20250811
  Receipt Date: 20250930
  Transmission Date: 20251020
  Serious: Yes (Hospitalization, Other)
  Sender: ABBVIE
  Company Number: US-ABBVIE-6406291

PATIENT
  Age: 64 Year
  Sex: Male

DRUGS (2)
  1. SKYRIZI [Suspect]
     Active Substance: RISANKIZUMAB-RZAA
     Indication: Psoriasis
     Route: 058
     Dates: start: 20250415, end: 20250415
  2. SKYRIZI [Suspect]
     Active Substance: RISANKIZUMAB-RZAA
     Route: 058
     Dates: start: 2024

REACTIONS (5)
  - Acute kidney injury [Recovering/Resolving]
  - Surgery [Unknown]
  - Dehydration [Recovered/Resolved]
  - Renal function test abnormal [Unknown]
  - Thirst [Unknown]

NARRATIVE: CASE EVENT DATE: 20250101
